FAERS Safety Report 6803498-4 (Version None)
Quarter: 2010Q2

REPORT INFORMATION
  Report Type: 
  Country: None (occurrence: None)
  Receive Date: 20100628
  Receipt Date: 20100618
  Transmission Date: 20101027
  Serious: Yes (Hospitalization, Other)
  Sender: FDA-Public Use
  Company Number: GB-NOVOPROD-305235

PATIENT
  Sex: Male

DRUGS (16)
  1. VICTOZA [Suspect]
     Indication: TYPE 2 DIABETES MELLITUS
     Dosage: 1.2 MG, QD
     Route: 058
     Dates: start: 20091125, end: 20100305
  2. VICTOZA [Suspect]
     Indication: OBESITY
  3. SIMVASTATIN [Concomitant]
     Dosage: 40 MG, QD
     Route: 048
     Dates: end: 20100304
  4. SIMVASTATIN [Concomitant]
     Dosage: 40 UNK, UNK
     Route: 048
     Dates: start: 20100310
  5. METFORMIN HCL [Concomitant]
     Dosage: 1000 MG, BID
     Route: 048
     Dates: end: 20100304
  6. METFORMIN HCL [Concomitant]
     Dosage: 1000 UNK, UNK
     Route: 048
     Dates: start: 20100310
  7. WARFARIN [Concomitant]
     Dosage: UNK
  8. SPIRONOLACTONE [Concomitant]
     Dosage: 25 MG, QD
     Route: 048
     Dates: end: 20100304
  9. SPIRONOLACTONE [Concomitant]
     Dosage: 25 UNK, UNK
     Route: 048
     Dates: start: 20100310
  10. TELMISARTAN [Concomitant]
     Dosage: 40 MG, QD
     Route: 048
     Dates: end: 20100304
  11. TELMISARTAN [Concomitant]
     Dosage: 40 UNK, UNK
     Route: 048
     Dates: start: 20100310
  12. ATENOLOL [Concomitant]
     Dosage: 100 MG, QD
     Route: 048
  13. FUROSEMIDE [Concomitant]
     Dosage: 80 MG, BID
     Route: 048
     Dates: end: 20100304
  14. FUROSEMIDE [Concomitant]
     Dosage: 80 UNK, UNK
     Route: 048
     Dates: start: 20100310
  15. TOLTERODINE TARTRATE [Concomitant]
     Dosage: 2 MG, BID
     Route: 048
  16. TOPAL [Concomitant]
     Dosage: 3 TABLETS PRN
     Route: 048

REACTIONS (2)
  - OFF LABEL USE [None]
  - RENAL FAILURE [None]
